FAERS Safety Report 7767293-4 (Version None)
Quarter: 2011Q3

REPORT INFORMATION
  Report Type: 
  Country: None (occurrence: None)
  Receive Date: 20110922
  Receipt Date: 20110523
  Transmission Date: 20111222
  Serious: No
  Sender: FDA-Public Use
  Company Number: US-ASTRAZENECA-2011SE31361

PATIENT
  Age: 49 Year
  Sex: Female
  Weight: 62.1 kg

DRUGS (3)
  1. SEROQUEL [Suspect]
     Route: 048
  2. VALTURRA [Concomitant]
  3. KLONOPIN [Concomitant]

REACTIONS (3)
  - DRUG DOSE OMISSION [None]
  - ANXIETY [None]
  - TREMOR [None]
